FAERS Safety Report 12179567 (Version 3)
Quarter: 2016Q2

REPORT INFORMATION
  Report Type: Spontaneous
  Country: CA (occurrence: CA)
  Receive Date: 20160314
  Receipt Date: 20160422
  Transmission Date: 20160815
  Serious: Yes (Other)
  Sender: FDA-Public Use
  Company Number: PHHY2016CA031533

PATIENT
  Age: 73 Year
  Sex: Male

DRUGS (1)
  1. AMIODARONE HYDROCHLORIDE. [Suspect]
     Active Substance: AMIODARONE HYDROCHLORIDE
     Indication: ARRHYTHMIA
     Dosage: 200 MG, QD
     Route: 065
     Dates: start: 20160121, end: 20160218

REACTIONS (6)
  - Dry mouth [Recovering/Resolving]
  - Decreased appetite [Recovering/Resolving]
  - Dysgeusia [Not Recovered/Not Resolved]
  - Anxiety [Recovering/Resolving]
  - Weight decreased [Recovering/Resolving]
  - Depression [Recovering/Resolving]
